FAERS Safety Report 17718115 (Version 4)
Quarter: 2020Q3

REPORT INFORMATION
  Report Type: Spontaneous
  Country: DE (occurrence: DE)
  Receive Date: 20200428
  Receipt Date: 20200917
  Transmission Date: 20201102
  Serious: Yes (Other)
  Sender: FDA-Public Use
  Company Number: NVSC2020DE113533

PATIENT
  Age: 56 Year
  Sex: Female
  Weight: 72 kg

DRUGS (15)
  1. MACROGOL [Concomitant]
     Active Substance: POLYETHYLENE GLYCOLS
     Indication: CONSTIPATION
     Dosage: UNK (EVERY TWO DAYS WHEN NEEDED)
     Route: 065
  2. BEPANTHEN [Concomitant]
     Indication: PRODUCT USED FOR UNKNOWN INDICATION
     Dosage: UNK
     Route: 065
  3. DOXEPIN [Suspect]
     Active Substance: DOXEPIN
     Indication: BIPOLAR DISORDER
     Dosage: 25 MG, QD (25 MG, FREQUENCY: THREE TIMES TAKING FROM 20 YEARS)(FREQUENCY: ONCE )
     Route: 065
     Dates: end: 202001
  4. PARACETAMOL [Concomitant]
     Active Substance: ACETAMINOPHEN
     Indication: PRODUCT USED FOR UNKNOWN INDICATION
     Dosage: STRENGTH: 500 (UNSPECIFIED UNIT)
     Route: 065
  5. SALBUHEXAL [Concomitant]
     Active Substance: ALBUTEROL
     Indication: PRODUCT USED FOR UNKNOWN INDICATION
     Dosage: UNK (STRENGTH: 100 (UNSPECIFIED UNITS). FROM APR (UNSPECIFIED YEAR) TO MAY (UNSPECIFIED YEAR).)
     Route: 065
  6. PROMETAZIN [Suspect]
     Active Substance: PROMETHAZINE HYDROCHLORIDE
     Indication: BIPOLAR DISORDER
     Dosage: STRENGTH 25 (UNSPECIFIED UNITS).
     Route: 065
     Dates: start: 2014
  7. QUETIAPINE. [Concomitant]
     Active Substance: QUETIAPINE
     Indication: BIPOLAR DISORDER
     Dosage: STRENGTH: 25 (UNSPECIFIED UNITS)
     Route: 065
     Dates: start: 20200124
  8. PROMETAZIN [Suspect]
     Active Substance: PROMETHAZINE HYDROCHLORIDE
     Indication: DEPRESSION
     Dosage: SIGNIFICANTLY REDUCED.
     Route: 065
     Dates: end: 202001
  9. CORNEREGEL [Concomitant]
     Active Substance: DEXPANTHENOL
     Indication: PRODUCT USED FOR UNKNOWN INDICATION
     Dosage: UNK (EYE OINTMENT)
     Route: 065
  10. QUETIAPINE. [Concomitant]
     Active Substance: QUETIAPINE
     Indication: DEPRESSION
  11. DOXEPIN [Suspect]
     Active Substance: DOXEPIN
     Indication: DEPRESSION
  12. MAVENCLAD [Suspect]
     Active Substance: CLADRIBINE
     Indication: RELAPSING-REMITTING MULTIPLE SCLEROSIS
     Dosage: FIRST WEEK THERAPY: THE PATIENT TOOK 2 TABLET ON DAY 1 AND THEN 1 TABLET DAILY FROM DAY 2 TO 5.
     Route: 048
     Dates: start: 20190416, end: 20190420
  13. GANFORT [Concomitant]
     Active Substance: BIMATOPROST\TIMOLOL
     Indication: GLAUCOMA
     Dosage: UNK
     Route: 065
  14. MAVENCLAD [Suspect]
     Active Substance: CLADRIBINE
     Dosage: SECOND WEEK THERAPY: 2 TABLET DAILY ON DAY 1 AND 2 THEN 1 TABLET DAILY FROM DAY 3 TO 5.
     Route: 048
     Dates: start: 20190515, end: 20190519
  15. RIOPAN [Concomitant]
     Indication: PRODUCT USED FOR UNKNOWN INDICATION
     Dosage: UNK (STRENGTH: 800 (UNSPECIFIED UNITS))
     Route: 065

REACTIONS (16)
  - Hyperkinetic heart syndrome [Recovering/Resolving]
  - Nasopharyngitis [Not Recovered/Not Resolved]
  - Bronchial hyperreactivity [Unknown]
  - Vitreous opacities [Unknown]
  - Feeling cold [Unknown]
  - Insomnia [Unknown]
  - Sleep disorder [Unknown]
  - Headache [Unknown]
  - Dental cyst [Not Recovered/Not Resolved]
  - Listless [Unknown]
  - Tension [Unknown]
  - Lymphocyte count decreased [Not Recovered/Not Resolved]
  - Panic attack [Unknown]
  - White blood cell count decreased [Unknown]
  - Weight increased [Not Recovered/Not Resolved]
  - Restlessness [Unknown]

NARRATIVE: CASE EVENT DATE: 20190416
